FAERS Safety Report 9680078 (Version 2)
Quarter: 2013Q4

REPORT INFORMATION
  Report Type: Spontaneous
  Country: US (occurrence: US)
  Receive Date: 20131110
  Receipt Date: 20131121
  Transmission Date: 20140711
  Serious: Yes (Hospitalization, Other)
  Sender: FDA-Public Use
  Company Number: US-AMGEN-USASP2013078258

PATIENT
  Age: 90 Year
  Sex: Female
  Weight: 53.52 kg

DRUGS (10)
  1. PROLIA [Suspect]
     Indication: PRODUCT USED FOR UNKNOWN INDICATION
     Dosage: 60 MG, UNK
     Route: 058
     Dates: start: 20131021
  2. ALBUTEROL                          /00139501/ [Concomitant]
  3. VESICARE [Concomitant]
  4. ASPIRIN [Concomitant]
  5. TRAMADOL [Concomitant]
  6. COREG [Concomitant]
  7. DIOVAN [Concomitant]
  8. ETHACRYNIC ACID [Concomitant]
  9. LIDODERM [Concomitant]
  10. BENEFIBER                          /00677201/ [Concomitant]

REACTIONS (6)
  - Pain [Recovered/Resolved]
  - Myalgia [Recovered/Resolved]
  - Hypocalcaemia [Recovered/Resolved]
  - Tetany [Unknown]
  - Blood calcium abnormal [Unknown]
  - Muscle spasms [Unknown]
